FAERS Safety Report 19862261 (Version 2)
Quarter: 2021Q4

REPORT INFORMATION
  Report Type: Spontaneous
  Country: US (occurrence: US)
  Receive Date: 20210921
  Receipt Date: 20211109
  Transmission Date: 20220304
  Serious: No
  Sender: FDA-Public Use
  Company Number: US-GLENMARK PHARMACEUTICALS-2021GMK066950

PATIENT

DRUGS (1)
  1. BETAMETHASONE DIPROPIONATE [Suspect]
     Active Substance: BETAMETHASONE DIPROPIONATE
     Indication: Pruritus
     Dosage: UNK, BID (ONCE IN THE MORNING AND ONCE AT NIGHT)
     Route: 061
     Dates: start: 2020

REACTIONS (3)
  - Product substitution issue [Unknown]
  - Therapeutic product effect delayed [Unknown]
  - Product quality issue [Unknown]

NARRATIVE: CASE EVENT DATE: 20200101
